FAERS Safety Report 24685762 (Version 3)
Quarter: 2025Q1

REPORT INFORMATION
  Report Type: Spontaneous
  Country: US (occurrence: US)
  Receive Date: 20241202
  Receipt Date: 20250204
  Transmission Date: 20250408
  Serious: No
  Sender: PFIZER
  Company Number: US-PFIZER INC-PV202400143296

PATIENT
  Age: 71 Year
  Sex: Female

DRUGS (2)
  1. TUKYSA [Suspect]
     Active Substance: TUCATINIB
     Dosage: TWO TABLETS TWICE A DAY/150MG 2 TABS PO (PER ORAL) BID (TWICE DAILY)
     Route: 048
  2. OMEPRAZOLE [Concomitant]
     Active Substance: OMEPRAZOLE

REACTIONS (3)
  - Fungal infection [Unknown]
  - Cellulitis [Unknown]
  - Diarrhoea [Unknown]
